FAERS Safety Report 10081824 (Version 5)
Quarter: 2016Q2

REPORT INFORMATION
  Report Type: Spontaneous
  Country: US (occurrence: US)
  Receive Date: 20140416
  Receipt Date: 20160408
  Transmission Date: 20160815
  Serious: Yes (Disabling, Other)
  Sender: FDA-Public Use
  Company Number: US-009507513-0808USA03174

PATIENT
  Sex: Male
  Weight: 74.83 kg

DRUGS (1)
  1. PROPECIA [Suspect]
     Active Substance: FINASTERIDE
     Indication: ANDROGENETIC ALOPECIA
     Dosage: 1 MG, QD
     Route: 048
     Dates: start: 20070726, end: 20080708

REACTIONS (36)
  - Muscle atrophy [Unknown]
  - Abdominal distension [Unknown]
  - Polydipsia [Unknown]
  - Hypopituitarism [Unknown]
  - Therapeutic product ineffective [Unknown]
  - Dysuria [Recovered/Resolved]
  - Decreased appetite [Unknown]
  - Sexual dysfunction [Not Recovered/Not Resolved]
  - Productive cough [Unknown]
  - Hypoaesthesia [Unknown]
  - Blood testosterone decreased [Unknown]
  - Sexually transmitted disease [Unknown]
  - Polyuria [Unknown]
  - Nocturia [Unknown]
  - Pruritus [Unknown]
  - Organic erectile dysfunction [Unknown]
  - Suicidal ideation [Not Recovered/Not Resolved]
  - Penis disorder [Not Recovered/Not Resolved]
  - Asthenia [Unknown]
  - Sinus disorder [Unknown]
  - Pollakiuria [Unknown]
  - Hypertonic bladder [Unknown]
  - Constipation [Unknown]
  - Testicular atrophy [Unknown]
  - Abdominal pain [Unknown]
  - Hypogonadism [Unknown]
  - Depression [Not Recovered/Not Resolved]
  - Prostatic disorder [Unknown]
  - Weight decreased [Unknown]
  - Erectile dysfunction [Unknown]
  - Loss of libido [Not Recovered/Not Resolved]
  - Anxiety [Not Recovered/Not Resolved]
  - Blood luteinising hormone increased [Unknown]
  - Ejaculation disorder [Unknown]
  - Hypotrichosis [Unknown]
  - Haematochezia [Unknown]

NARRATIVE: CASE EVENT DATE: 2007
